FAERS Safety Report 9676307 (Version 1)
Quarter: 2013Q4

REPORT INFORMATION
  Report Type: Spontaneous
  Country: US (occurrence: None)
  Receive Date: 20131106
  Receipt Date: 20131106
  Transmission Date: 20140711
  Serious: Yes (Death)
  Sender: FDA-Public Use
  Company Number: UTC-039975

PATIENT
  Age: 77 Year
  Sex: Male

DRUGS (2)
  1. REMODULIN [Suspect]
     Indication: PULMONARY ARTERIAL HYPERTENSION
     Dosage: 103.68 UG.KG (0.072 UG.KG, 1 IN 1 MIN), SUBCUTANEOUS
     Route: 058
  2. ADCIRA (TADALAFIL) [Concomitant]

REACTIONS (1)
  - Death [None]
